FAERS Safety Report 8259387-4 (Version None)
Quarter: 2012Q1

REPORT INFORMATION
  Report Type: 
  Country: None (occurrence: None)
  Receive Date: 20120327
  Receipt Date: 20081002
  Transmission Date: 20120608
  Serious: Yes (Other)
  Sender: FDA-Public Use
  Company Number: PHEH2008US08782

PATIENT
  Sex: Female

DRUGS (1)
  1. GLEEVEC [Suspect]

REACTIONS (3)
  - VOMITING [None]
  - NAUSEA [None]
  - RENAL FAILURE [None]
